FAERS Safety Report 9522639 (Version 1)
Quarter: 2013Q1

REPORT INFORMATION
  Report Type: Spontaneous
  Country: US (occurrence: None)
  Receive Date: 20130305
  Receipt Date: 20130305
  Transmission Date: 20140127
  Serious: Yes (Other)
  Sender: FDA-Public Use
  Company Number: 163-21880-12072793

PATIENT
  Age: 85 Year
  Sex: Female

DRUGS (4)
  1. REVLIMID (LENALIDOMIDE) (CAPSULES) [Suspect]
     Indication: PLASMA CELL MYELOMA
     Route: 048
     Dates: start: 20100603
  2. COMBIGAN (COMBIGAN) (UNKNOWN) [Concomitant]
  3. COLON  CLEANSER (OTHER THERAPEUTIC PRODUCTS) (UNKNOWN) [Concomitant]
  4. LUMIGAN [Suspect]

REACTIONS (2)
  - Asthenia [None]
  - Decreased appetite [None]
